FAERS Safety Report 15492717 (Version 2)
Quarter: 2018Q4

REPORT INFORMATION
  Report Type: Spontaneous
  Country: JP (occurrence: JP)
  Receive Date: 20181012
  Receipt Date: 20181229
  Transmission Date: 20190205
  Serious: No
  Sender: FDA-Public Use
  Company Number: JP-GLAXOSMITHKLINE-JP2018JPN174249

PATIENT
  Age: 76 Year
  Sex: Male

DRUGS (6)
  1. LEVODOPA [Concomitant]
     Active Substance: LEVODOPA
     Dosage: UNK
  2. REQUIP [Suspect]
     Active Substance: ROPINIROLE HYDROCHLORIDE
     Indication: PARKINSON^S DISEASE
     Dosage: 10 MG, QD
     Route: 048
  3. MADOPAR [Concomitant]
     Active Substance: BENSERAZIDE HYDROCHLORIDE\LEVODOPA
     Dosage: UNK
  4. DOPS (JAPAN) [Concomitant]
     Dosage: UNK
  5. NOURIAST [Concomitant]
     Active Substance: ISTRADEFYLLINE
     Dosage: UNK
  6. COMTAN [Concomitant]
     Active Substance: ENTACAPONE
     Dosage: UNK

REACTIONS (2)
  - Dysphagia [Unknown]
  - Intercepted product prescribing error [Unknown]
